FAERS Safety Report 6435543-2 (Version None)
Quarter: 2009Q4

REPORT INFORMATION
  Report Type: 
  Country: None (occurrence: None)
  Receive Date: 20091111
  Receipt Date: 20091105
  Transmission Date: 20100525
  Serious: Yes (Other)
  Sender: FDA-Public Use
  Company Number: US-ASTRAZENECA-2008UW27492

PATIENT
  Age: 41 Year
  Sex: Female
  Weight: 99.3 kg

DRUGS (6)
  1. SEROQUEL [Suspect]
     Indication: INSOMNIA
     Route: 048
     Dates: start: 20030101, end: 20080701
  2. ABILIFY [Concomitant]
  3. RISPERDAL [Concomitant]
  4. ZYPREXA [Concomitant]
  5. ZOLOFT [Concomitant]
  6. LEXAPRO [Concomitant]

REACTIONS (3)
  - DIABETES MELLITUS [None]
  - DIABETIC ULCER [None]
  - LOCALISED INFECTION [None]
